FAERS Safety Report 6556987-4 (Version None)
Quarter: 2010Q1

REPORT INFORMATION
  Report Type: 
  Country: None (occurrence: None)
  Receive Date: 20100126
  Receipt Date: 20100113
  Transmission Date: 20100710
  Serious: Yes (Death, Hospitalization)
  Sender: FDA-Public Use
  Company Number: 2009AC000162

PATIENT
  Age: 72 Year
  Sex: Male

DRUGS (13)
  1. DIGOXIN [Suspect]
     Dosage: 0.25 MG; PO
     Route: 048
     Dates: start: 19971020, end: 20080224
  2. FUROSEMIDE [Concomitant]
  3. ISOSORB DIN [Concomitant]
  4. CLINORIL [Concomitant]
  5. PREDNISONE [Concomitant]
  6. CARAPATE [Concomitant]
  7. SOLGANAL [Concomitant]
  8. PROCARDIA [Concomitant]
  9. LASIX [Concomitant]
  10. K-DUR [Concomitant]
  11. DELTASONE [Concomitant]
  12. METHOTREXATE [Concomitant]
  13. ARAVA [Concomitant]

REACTIONS (7)
  - CARDIAC ARREST [None]
  - ECONOMIC PROBLEM [None]
  - ELECTROMECHANICAL DISSOCIATION [None]
  - INJURY [None]
  - LOSS OF CONSCIOUSNESS [None]
  - RESPIRATORY ARREST [None]
  - VENTRICULAR FIBRILLATION [None]
